FAERS Safety Report 7329432-9 (Version None)
Quarter: 2011Q1

REPORT INFORMATION
  Report Type: 
  Country: None (occurrence: None)
  Receive Date: 20110225
  Receipt Date: 20110225
  Transmission Date: 20110831
  Serious: Yes (Hospitalization, Other)
  Sender: FDA-Public Use
  Company Number: None

PATIENT
  Age: 46 Year
  Sex: Female
  Weight: 84.369 kg

DRUGS (1)
  1. CYMBALTA [Suspect]
     Indication: SEROTONIN SYNDROME
     Dosage: 20 MG ONE BEFORE BED PO
     Route: 048
     Dates: start: 20110215, end: 20110215

REACTIONS (8)
  - FRUSTRATION [None]
  - DRUG INTERACTION [None]
  - MUSCLE SPASMS [None]
  - MYALGIA [None]
  - APHASIA [None]
  - ANXIETY [None]
  - SEROTONIN SYNDROME [None]
  - ILL-DEFINED DISORDER [None]
